FAERS Safety Report 7125479-6 (Version None)
Quarter: 2010Q4

REPORT INFORMATION
  Report Type: 
  Country: None (occurrence: None)
  Receive Date: 20101129
  Receipt Date: 20101123
  Transmission Date: 20110411
  Serious: Yes (Death)
  Sender: FDA-Public Use
  Company Number: TN-SANOFI-AVENTIS-2010SA071175

PATIENT
  Age: 75 Year
  Sex: Male

DRUGS (5)
  1. PLAVIX [Suspect]
     Indication: ACUTE CORONARY SYNDROME
     Route: 048
     Dates: start: 20100405, end: 20101116
  2. CRESTOR [Concomitant]
     Route: 048
     Dates: end: 20101116
  3. BISOPROLOL FUMARATE [Concomitant]
     Route: 048
     Dates: end: 20101116
  4. LASILIX [Concomitant]
     Route: 048
     Dates: end: 20101116
  5. BLOPRESS [Concomitant]
     Route: 048
     Dates: end: 20101116

REACTIONS (1)
  - MALIGNANT NEOPLASM PROGRESSION [None]
